FAERS Safety Report 12330464 (Version 3)
Quarter: 2016Q2

REPORT INFORMATION
  Report Type: Spontaneous
  Country: MX (occurrence: MX)
  Receive Date: 20160504
  Receipt Date: 20160609
  Transmission Date: 20160815
  Serious: Yes (Hospitalization, Disabling, Other)
  Sender: FDA-Public Use
  Company Number: MX-009507513-1605MEX000898

PATIENT
  Age: 58 Year
  Sex: Male
  Weight: 80.5 kg

DRUGS (4)
  1. PEGTRON [Suspect]
     Active Substance: PEGINTERFERON ALFA-2B
     Dosage: 0.5 ML, QW
     Route: 058
     Dates: start: 201604, end: 20160603
  2. COTRONAK [Suspect]
     Active Substance: RIBAVIRIN
     Indication: HEPATITIS C
     Dosage: 200 MG 5 TIMES PER DAY; DAILY DOSE 1000 MG
     Route: 048
     Dates: start: 20150829, end: 201604
  3. COTRONAK [Suspect]
     Active Substance: RIBAVIRIN
     Dosage: 200 MG 5 TIMES PER DAY; DAILY DOSE 1000 MG
     Route: 048
     Dates: start: 201604, end: 20160603
  4. PEGTRON [Suspect]
     Active Substance: PEGINTERFERON ALFA-2B
     Indication: HEPATITIS C
     Dosage: 0.5 ML, QW
     Route: 058
     Dates: start: 20150928, end: 201604

REACTIONS (3)
  - Hepatic encephalopathy [Recovered/Resolved]
  - Drug dose omission [Unknown]
  - Encephalopathy [Recovered/Resolved]

NARRATIVE: CASE EVENT DATE: 201604
